FAERS Safety Report 21434103 (Version 2)
Quarter: 2022Q4

REPORT INFORMATION
  Report Type: Spontaneous
  Country: IN (occurrence: IN)
  Receive Date: 20221010
  Receipt Date: 20221010
  Transmission Date: 20230113
  Serious: Yes (Other)
  Sender: FDA-Public Use
  Company Number: IN-LUPIN LIMITED-2022-11797

PATIENT
  Age: 28 Year
  Sex: Male

DRUGS (9)
  1. RIFAMPIN [Suspect]
     Active Substance: RIFAMPIN
     Indication: Arachnoiditis
     Dosage: UNK
     Route: 065
  2. PYRAZINAMIDE [Suspect]
     Active Substance: PYRAZINAMIDE
     Indication: Arachnoiditis
     Dosage: UNK
     Route: 065
  3. ETHAMBUTOL [Suspect]
     Active Substance: ETHAMBUTOL HYDROCHLORIDE
     Indication: Arachnoiditis
     Dosage: UNK
     Route: 065
  4. LEVOFLOXACIN [Suspect]
     Active Substance: LEVOFLOXACIN
     Indication: Arachnoiditis
     Dosage: UNK
     Route: 065
  5. ISONIAZID [Suspect]
     Active Substance: ISONIAZID
     Indication: Arachnoiditis
     Dosage: UNK
     Route: 065
  6. STREPTOMYCIN [Suspect]
     Active Substance: STREPTOMYCIN SULFATE
     Indication: Arachnoiditis
     Dosage: UNK
     Route: 065
  7. PREDNISOLONE [Suspect]
     Active Substance: PREDNISOLONE
     Indication: Arachnoiditis
     Dosage: 40 MG, QD
     Route: 065
  8. PROTIONAMIDE [Suspect]
     Active Substance: PROTIONAMIDE
     Indication: Arachnoiditis
     Dosage: UNK
     Route: 065
  9. CYCLOPHOSPHAMIDE [Concomitant]
     Active Substance: CYCLOPHOSPHAMIDE
     Indication: Arachnoiditis
     Dosage: 750 MG PER MONTH (4 DOSES)
     Route: 065

REACTIONS (3)
  - Therapy non-responder [Unknown]
  - Drug ineffective for unapproved indication [Unknown]
  - Off label use [Unknown]
